FAERS Safety Report 21796048 (Version 1)
Quarter: 2022Q4

REPORT INFORMATION
  Report Type: Spontaneous
  Country: MX (occurrence: None)
  Receive Date: 20221229
  Receipt Date: 20221229
  Transmission Date: 20230113
  Serious: Yes (Other)
  Sender: FDA-Public Use
  Company Number: MX-Eisai Medical Research-EC-2022-130749

PATIENT
  Sex: Female

DRUGS (1)
  1. HALAVEN [Suspect]
     Active Substance: ERIBULIN MESYLATE
     Indication: Liposarcoma
     Dosage: DOSE UNKNOWN
     Route: 042

REACTIONS (2)
  - Febrile neutropenia [Unknown]
  - Mucosal inflammation [Unknown]
